FAERS Safety Report 5754363-5 (Version None)
Quarter: 2008Q2

REPORT INFORMATION
  Report Type: 
  Country: None (occurrence: None)
  Receive Date: 20080530
  Receipt Date: 20080519
  Transmission Date: 20081010
  Serious: Yes (Life-Threatening, Other)
  Sender: FDA-Public Use
  Company Number: US-PFIZER INC-2008028709

PATIENT
  Sex: Female
  Weight: 54.4 kg

DRUGS (6)
  1. CHANTIX [Suspect]
     Indication: TOBACCO ABUSE
     Dates: start: 20080301, end: 20080324
  2. PROMETHAZINE [Concomitant]
  3. SOMA [Concomitant]
  4. CLONIDINE [Concomitant]
  5. XANAX [Concomitant]
  6. ZOLOFT [Concomitant]

REACTIONS (7)
  - ALANINE AMINOTRANSFERASE INCREASED [None]
  - CONVULSION [None]
  - DRUG SCREEN POSITIVE [None]
  - HEADACHE [None]
  - MEMORY IMPAIRMENT [None]
  - OPIATES POSITIVE [None]
  - UNRESPONSIVE TO STIMULI [None]
